FAERS Safety Report 14788784 (Version 1)
Quarter: 2018Q2

REPORT INFORMATION
  Report Type: Spontaneous
  Country: GB (occurrence: GB)
  Receive Date: 20180423
  Receipt Date: 20180423
  Transmission Date: 20180711
  Serious: Yes (Death, Hospitalization)
  Sender: FDA-Public Use
  Company Number: GB-ACCORD-065862

PATIENT
  Age: 61 Year
  Sex: Female
  Weight: 67.5 kg

DRUGS (2)
  1. CARBOPLATIN. [Suspect]
     Active Substance: CARBOPLATIN
     Indication: SQUAMOUS CELL CARCINOMA OF LUNG
     Dosage: DAY 1 OF FIRST CYCLE
     Dates: start: 20170824, end: 20170824
  2. GEMCITABINE/GEMCITABINE HYDROCHLORIDE [Suspect]
     Active Substance: GEMCITABINE\GEMCITABINE HYDROCHLORIDE
     Indication: SQUAMOUS CELL CARCINOMA OF LUNG
     Dates: start: 20170824, end: 20170824

REACTIONS (18)
  - Lethargy [Unknown]
  - Hypotension [Not Recovered/Not Resolved]
  - Dyspnoea [Unknown]
  - Unresponsive to stimuli [Not Recovered/Not Resolved]
  - Terminal agitation [Unknown]
  - Urine output decreased [Not Recovered/Not Resolved]
  - Performance status decreased [Unknown]
  - Electrolyte imbalance [Not Recovered/Not Resolved]
  - Asthenia [Unknown]
  - Rales [Not Recovered/Not Resolved]
  - Productive cough [Unknown]
  - Confusional state [Unknown]
  - Oral candidiasis [Unknown]
  - Blood lactic acid increased [Not Recovered/Not Resolved]
  - Atrial fibrillation [Not Recovered/Not Resolved]
  - Restlessness [Unknown]
  - Neutropenic sepsis [Fatal]
  - Somnolence [Unknown]

NARRATIVE: CASE EVENT DATE: 20170831
